FAERS Safety Report 9995605 (Version 6)
Quarter: 2015Q1

REPORT INFORMATION
  Report Type: Spontaneous
  Country: US (occurrence: US)
  Receive Date: 20140311
  Receipt Date: 20150108
  Transmission Date: 20150721
  Serious: Yes (Other)
  Sender: FDA-Public Use
  Company Number: US-BAYER-2014-034668

PATIENT
  Age: 29 Year
  Sex: Female
  Weight: 74.83 kg

DRUGS (8)
  1. XANAX [Concomitant]
     Active Substance: ALPRAZOLAM
  2. TETRAHYDROCANNABINOL [Concomitant]
     Active Substance: DRONABINOL
  3. ZOLOFT [Concomitant]
     Active Substance: SERTRALINE HYDROCHLORIDE
  4. MIRENA [Suspect]
     Active Substance: LEVONORGESTREL
     Indication: CONTRACEPTION
     Dosage: 20 MCG/24HR, CONT
     Route: 015
     Dates: start: 20061207, end: 20110729
  5. FLEXERIL [Concomitant]
     Active Substance: CYCLOBENZAPRINE HYDROCHLORIDE
     Route: 048
  6. SULFAMETHOXAZOLE/TRIMETHOPRIM [Concomitant]
     Active Substance: SULFAMETHOXAZOLE\TRIMETHOPRIM
     Dosage: UNK
     Dates: start: 20110609
  7. ALPRAZOLAM. [Concomitant]
     Active Substance: ALPRAZOLAM
     Dosage: UNK
     Dates: start: 20110514
  8. SERTRALINE [Concomitant]
     Active Substance: SERTRALINE HYDROCHLORIDE
     Dosage: UNK
     Dates: start: 20110514

REACTIONS (11)
  - Uterine rupture [None]
  - Drug ineffective [None]
  - Uterine cervical laceration [None]
  - Injury associated with device [None]
  - Complication of device removal [None]
  - Pregnancy with contraceptive device [None]
  - Device misuse [None]
  - Device defective [None]
  - Abortion spontaneous [None]
  - Embedded device [None]
  - Infection [None]

NARRATIVE: CASE EVENT DATE: 201012
